FAERS Safety Report 9266652 (Version 2)
Quarter: 2013Q3

REPORT INFORMATION
  Report Type: Spontaneous
  Country: US (occurrence: US)
  Receive Date: 20130502
  Receipt Date: 20130801
  Transmission Date: 20140515
  Serious: Yes (Other)
  Sender: FDA-Public Use
  Company Number: US-BAYER-2013-053754

PATIENT
  Age: 63 Year
  Sex: Female

DRUGS (2)
  1. AVELOX [Suspect]
     Indication: SINUSITIS
     Dosage: UNK
     Dates: start: 20130130
  2. AVELOX [Suspect]
     Indication: COUGH

REACTIONS (9)
  - Headache [Recovering/Resolving]
  - Ocular hyperaemia [Recovering/Resolving]
  - Iridocyclitis [Recovering/Resolving]
  - Iris atrophy [Recovering/Resolving]
  - Iris atrophy [Recovering/Resolving]
  - Eye pain [Recovering/Resolving]
  - Eye pain [Recovering/Resolving]
  - Pupillary reflex impaired [None]
  - Iris transillumination defect [None]
